FAERS Safety Report 4514919-4 (Version None)
Quarter: 2004Q4

REPORT INFORMATION
  Report Type: 
  Country: None (occurrence: None)
  Receive Date: 20041126
  Receipt Date: 20041115
  Transmission Date: 20050328
  Serious: Yes (Hospitalization)
  Sender: FDA-Public Use
  Company Number: 2004EU002058

PATIENT
  Age: 30 Year
  Sex: Male
  Weight: 110 kg

DRUGS (5)
  1. PROGRAF [Suspect]
     Indication: CROHN'S DISEASE
     Dosage: 1.50 MG, /D, ORAL
     Route: 048
     Dates: end: 20040812
  2. NOVALGIN /SCH/(METAMIZOLE SODIUM MONOHYDRATE) [Suspect]
     Indication: CROHN'S DISEASE
     Dosage: /D, INTRAVENOUS
     Route: 042
     Dates: end: 20040812
  3. AZATHIOPRINE [Suspect]
     Indication: CROHN'S DISEASE
     Dosage: 2.00 DF, /D, ORAL
     Route: 048
     Dates: end: 20040812
  4. AMPHO-MORONAL [Concomitant]
  5. THYROXIN (LEVOTHYROXINE SODIUM) [Concomitant]

REACTIONS (5)
  - BONE MARROW DEPRESSION [None]
  - FEMORAL NECK FRACTURE [None]
  - IMMUNOSUPPRESSION [None]
  - IMPAIRED HEALING [None]
  - PANCYTOPENIA [None]
